FAERS Safety Report 9264291 (Version 2)
Quarter: 2013Q2

REPORT INFORMATION
  Report Type: Spontaneous
  Country: US (occurrence: US)
  Receive Date: 20130430
  Receipt Date: 20130523
  Transmission Date: 20140414
  Serious: Yes (Other)
  Sender: FDA-Public Use
  Company Number: US-ASTRAZENECA-2013SE28469

PATIENT
  Age: 17934 Day
  Sex: Female
  Weight: 78.5 kg

DRUGS (9)
  1. SEROQUEL XR [Suspect]
     Indication: OBSESSIVE-COMPULSIVE DISORDER
     Route: 048
     Dates: start: 201207
  2. SEROQUEL XR [Suspect]
     Indication: DEPRESSION
     Route: 048
     Dates: start: 201207
  3. SEROQUEL XR [Suspect]
     Indication: OBSESSIVE-COMPULSIVE DISORDER
     Dosage: GENERIC, 300 MG UNKNOWN FREQUENCY
     Route: 048
  4. SEROQUEL XR [Suspect]
     Indication: DEPRESSION
     Dosage: GENERIC, 300 MG UNKNOWN FREQUENCY
     Route: 048
  5. SEROQUEL XR [Suspect]
     Indication: OBSESSIVE-COMPULSIVE DISORDER
     Route: 048
     Dates: start: 20120419, end: 20130215
  6. SEROQUEL XR [Suspect]
     Indication: DEPRESSION
     Route: 048
     Dates: start: 20120419, end: 20130215
  7. SERTALINE [Concomitant]
     Indication: DEPRESSION
     Route: 048
     Dates: start: 19970816
  8. SERTALINE [Concomitant]
     Indication: OBSESSIVE-COMPULSIVE DISORDER
     Route: 048
     Dates: start: 19970816
  9. CLONAZEPAM [Concomitant]
     Indication: ANXIETY
     Route: 048
     Dates: start: 19970816

REACTIONS (3)
  - Aspartate aminotransferase increased [Recovered/Resolved]
  - Alanine aminotransferase increased [Recovered/Resolved]
  - Off label use [Unknown]
